FAERS Safety Report 23732005 (Version 1)
Quarter: 2024Q2

REPORT INFORMATION
  Report Type: Spontaneous
  Country: BE (occurrence: BE)
  Receive Date: 20240411
  Receipt Date: 20240411
  Transmission Date: 20240716
  Serious: Yes (Other)
  Sender: FDA-Public Use
  Company Number: BE-PFIZER INC-PV202300159847

PATIENT
  Age: 57 Year
  Sex: Male

DRUGS (1)
  1. INLYTA [Suspect]
     Active Substance: AXITINIB
     Indication: Malignant melanoma of sites other than skin
     Dosage: 5 MG, 2X/DAY

REACTIONS (3)
  - Aphthous ulcer [Unknown]
  - Off label use [Unknown]
  - Drug effective for unapproved indication [Unknown]
